FAERS Safety Report 7717133-4 (Version None)
Quarter: 2011Q3

REPORT INFORMATION
  Report Type: 
  Country: None (occurrence: None)
  Receive Date: 20110826
  Receipt Date: 20110826
  Transmission Date: 20111222
  Serious: No
  Sender: FDA-Public Use
  Company Number: None

PATIENT
  Sex: Female

DRUGS (1)
  1. LIORESAL [Suspect]
     Indication: MUSCLE SPASTICITY
     Dosage: UNK MCG, DAILY INTRATHECAL
     Route: 037

REACTIONS (6)
  - CONVULSION [None]
  - INCORRECT DOSE ADMINISTERED [None]
  - MOUTH HAEMORRHAGE [None]
  - HYPOAESTHESIA [None]
  - CONFUSIONAL STATE [None]
  - AMNESIA [None]
